FAERS Safety Report 14253364 (Version 5)
Quarter: 2018Q1

REPORT INFORMATION
  Report Type: Spontaneous
  Country: FR (occurrence: FR)
  Receive Date: 20171206
  Receipt Date: 20180302
  Transmission Date: 20180508
  Serious: Yes (Other)
  Sender: FDA-Public Use
  Company Number: FR-009507513-1711FRA013066

PATIENT
  Age: 22 Year
  Sex: Female
  Weight: 53 kg

DRUGS (1)
  1. NEXPLANON [Suspect]
     Active Substance: ETONOGESTREL
     Dosage: 68 MG IMPLANT, RIGHT ARM (LEFT HANDED PATIENT)
     Route: 059
     Dates: start: 20170928

REACTIONS (3)
  - Abortion spontaneous [Unknown]
  - Circumstance or information capable of leading to medication error [Unknown]
  - Maternal exposure during pregnancy [Recovered/Resolved]

NARRATIVE: CASE EVENT DATE: 20171126
